FAERS Safety Report 7495674-5 (Version None)
Quarter: 2011Q2

REPORT INFORMATION
  Report Type: 
  Country: None (occurrence: None)
  Receive Date: 20110523
  Receipt Date: 20110517
  Transmission Date: 20111010
  Serious: Yes (Other)
  Sender: FDA-Public Use
  Company Number: US-PFIZER INC-2011107049

PATIENT
  Sex: Male
  Weight: 102 kg

DRUGS (3)
  1. SIMVASTATIN [Concomitant]
     Dosage: 20 MG, UNK
  2. SUTENT [Suspect]
     Dosage: 50 MG, 1X/DAY FOR 14 DAYS ON, 7 DAYS OFF, THEN REPEAT
     Route: 048
  3. LEVOTHYROXINE SODIUM [Concomitant]
     Dosage: 100 UG, UNK

REACTIONS (4)
  - LIVER DISORDER [None]
  - CARDIAC DISORDER [None]
  - EJECTION FRACTION DECREASED [None]
  - THYROID DISORDER [None]
